FAERS Safety Report 25274160 (Version 3)
Quarter: 2025Q2

REPORT INFORMATION
  Report Type: Spontaneous
  Country: JP (occurrence: JP)
  Receive Date: 20250506
  Receipt Date: 20250603
  Transmission Date: 20250717
  Serious: Yes (Other)
  Sender: ALCON
  Company Number: JP-ALCON LABORATORIES-ALC2025JP002297

PATIENT
  Age: 78 Year
  Sex: Female

DRUGS (4)
  1. BSS PLUS [Suspect]
     Active Substance: CALCIUM CHLORIDE\DEXTROSE\MAGNESIUM CHLORIDE\OXIGLUTATIONE\POTASSIUM CHLORIDE\SODIUM BICARBONATE\SOD
     Indication: Product used for unknown indication
     Route: 047
  2. BRILLIANT BLUE G [Suspect]
     Active Substance: BRILLIANT BLUE G
     Indication: Eye operation
     Route: 065
  3. DIMETHICONE [Suspect]
     Active Substance: DIMETHICONE
     Indication: Eye operation
     Route: 065
  4. TRIAMCINOLONE ACETONIDE [Suspect]
     Active Substance: TRIAMCINOLONE ACETONIDE
     Indication: Eye operation
     Route: 065

REACTIONS (1)
  - Toxic anterior segment syndrome [Recovered/Resolved]

NARRATIVE: CASE EVENT DATE: 20250313
